FAERS Safety Report 12562699 (Version 2)
Quarter: 2016Q3

REPORT INFORMATION
  Report Type: Report from Study
  Country: CA (occurrence: CA)
  Receive Date: 20160715
  Receipt Date: 20160721
  Transmission Date: 20161109
  Serious: No
  Sender: FDA-Public Use
  Company Number: CA-009507513-1607CAN006080

PATIENT
  Sex: Male

DRUGS (1)
  1. TEMODAL [Suspect]
     Active Substance: TEMOZOLOMIDE
     Indication: NON-HODGKIN^S LYMPHOMA
     Dosage: 250 MG, QD
     Route: 048
     Dates: start: 2016, end: 201606

REACTIONS (2)
  - Disease progression [Unknown]
  - Product use issue [Unknown]

NARRATIVE: CASE EVENT DATE: 2016
